FAERS Safety Report 9773006 (Version 1)
Quarter: 2013Q4

REPORT INFORMATION
  Report Type: Spontaneous
  Country: US (occurrence: None)
  Receive Date: 20131218
  Receipt Date: 20131218
  Transmission Date: 20140711
  Serious: No
  Sender: FDA-Public Use
  Company Number: None

PATIENT
  Sex: Female
  Weight: 113.85 kg

DRUGS (1)
  1. WELLBUTRIN XL [Suspect]
     Indication: ANXIETY DISORDER
     Route: 048

REACTIONS (3)
  - Headache [None]
  - Aggression [None]
  - Product substitution issue [None]
